FAERS Safety Report 8820411 (Version 1)
Quarter: 2012Q4

REPORT INFORMATION
  Report Type: 
  Country: FR (occurrence: FR)
  Receive Date: 20121002
  Receipt Date: 20121002
  Transmission Date: 20130627
  Serious: Yes (Hospitalization)
  Sender: FDA-Public Use
  Company Number: FR-MPIJNJ-2012-06674

PATIENT

DRUGS (10)
  1. VELCADE [Suspect]
     Indication: MULTIPLE MYELOMA
     Dosage: UNK
     Dates: start: 200409
  2. VELCADE [Suspect]
     Dosage: 8 mg, UNK
     Route: 065
     Dates: start: 20050425
  3. BACLOFENE IREX [Concomitant]
     Dosage: 10 mg, UNK
  4. KARDEGIC                           /00002703/ [Concomitant]
     Dosage: 75 mg, UNK
  5. FOLIC ACID [Concomitant]
  6. KEPPRA [Concomitant]
  7. GABAPENTIN [Concomitant]
     Dosage: 300 mg, UNK
  8. DEROXAT [Concomitant]
     Dosage: 20 mg, UNK
  9. AREDIA [Concomitant]
  10. LEXOMIL [Concomitant]

REACTIONS (1)
  - Thrombotic microangiopathy [Recovered/Resolved]
